FAERS Safety Report 9961474 (Version 1)
Quarter: 2014Q1

REPORT INFORMATION
  Report Type: Spontaneous
  Country: NL (occurrence: NL)
  Receive Date: 20140305
  Receipt Date: 20140305
  Transmission Date: 20141002
  Serious: Yes (Hospitalization)
  Sender: FDA-Public Use
  Company Number: NL-NOVOPROD-401498

PATIENT
  Sex: Male

DRUGS (1)
  1. GLUCAGEN [Suspect]
     Indication: POISONING
     Dosage: UNK
     Route: 042

REACTIONS (1)
  - Off label use [Unknown]
